FAERS Safety Report 10245417 (Version 1)
Quarter: 2014Q2

REPORT INFORMATION
  Report Type: Report from Study
  Country: US (occurrence: US)
  Receive Date: 20140618
  Receipt Date: 20140618
  Transmission Date: 20141212
  Serious: Yes (Other)
  Sender: FDA-Public Use
  Company Number: US-GILEAD-2014-0105230

PATIENT
  Sex: Male

DRUGS (1)
  1. SOFOSBUVIR [Suspect]
     Indication: CHRONIC HEPATITIS C
     Dosage: 400 MG, UNK
     Route: 065
     Dates: start: 20140303, end: 20140531

REACTIONS (3)
  - Ammonia increased [Unknown]
  - Viral load increased [Unknown]
  - Drug ineffective [Unknown]
